FAERS Safety Report 13751746 (Version 2)
Quarter: 2017Q3

REPORT INFORMATION
  Report Type: Report from Study
  Country: US (occurrence: US)
  Receive Date: 20170713
  Receipt Date: 20170811
  Transmission Date: 20171127
  Serious: Yes (Hospitalization, Other)
  Sender: FDA-Public Use
  Company Number: US-ENDO PHARMACEUTICALS INC-2017-003883

PATIENT
  Age: 59 Year
  Sex: Male
  Weight: 91.16 kg

DRUGS (1)
  1. XIAFLEX [Suspect]
     Active Substance: COLLAGENASE CLOSTRIDIUM HISTOLYTICUM
     Indication: PEYRONIE^S DISEASE
     Dosage: 0.58 MG, FOUR SERIES EVERY SIX WEEKS
     Route: 026
     Dates: start: 20170508, end: 20170622

REACTIONS (6)
  - Penis disorder [Recovered/Resolved]
  - Nerve injury [Not Recovered/Not Resolved]
  - Fracture of penis [Recovering/Resolving]
  - Penile swelling [Recovering/Resolving]
  - Corpora cavernosa surgery [Recovered/Resolved]
  - Painful erection [Recovered/Resolved]

NARRATIVE: CASE EVENT DATE: 20170707
